FAERS Safety Report 15116589 (Version 1)
Quarter: 2018Q3

REPORT INFORMATION
  Report Type: Spontaneous
  Country: FR (occurrence: FR)
  Receive Date: 20180706
  Receipt Date: 20180706
  Transmission Date: 20181010
  Serious: Yes (Other)
  Sender: FDA-Public Use
  Company Number: FR-PFIZER INC-2018268024

PATIENT
  Age: 55 Year
  Sex: Male
  Weight: 51.5 kg

DRUGS (6)
  1. PERINDOPRIL TERT?BUTYLAMINE A [Suspect]
     Active Substance: PERINDOPRIL ERBUMINE
  2. ALDACTONE [Suspect]
     Active Substance: SPIRONOLACTONE
  3. LEVACT [Suspect]
     Active Substance: BENDAMUSTINE HYDROCHLORIDE
     Indication: EXTRANODAL MARGINAL ZONE B-CELL LYMPHOMA (MALT TYPE)
     Dosage: 206 MG A DAY
     Route: 042
     Dates: start: 20180420, end: 20180421
  4. FUROSEMIDE. [Suspect]
     Active Substance: FUROSEMIDE
  5. IRBESARTAN. [Suspect]
     Active Substance: IRBESARTAN
  6. TRUXIMA [Suspect]
     Active Substance: RITUXIMAB
     Indication: EXTRANODAL MARGINAL ZONE B-CELL LYMPHOMA (MALT TYPE)
     Dosage: 656 MG
     Route: 041
     Dates: start: 20180420, end: 20180420

REACTIONS (2)
  - Anuria [Recovered/Resolved]
  - Acute kidney injury [Recovered/Resolved]

NARRATIVE: CASE EVENT DATE: 201804
